FAERS Safety Report 9955246 (Version 1)
Quarter: 2014Q1

REPORT INFORMATION
  Report Type: Spontaneous
  Country: GB (occurrence: GB)
  Receive Date: 20140304
  Receipt Date: 20140304
  Transmission Date: 20141002
  Serious: Yes (Hospitalization)
  Sender: FDA-Public Use
  Company Number: GB-ACORDA-ACO_102128_2014

PATIENT
  Sex: Female

DRUGS (1)
  1. FAMPYRA [Suspect]
     Indication: MULTIPLE SCLEROSIS
     Dosage: 10 MG, BID
     Route: 048

REACTIONS (5)
  - Diarrhoea [Unknown]
  - Feeling drunk [Unknown]
  - Malaise [Unknown]
  - Feeling abnormal [Unknown]
  - Fatigue [Unknown]
